FAERS Safety Report 25746661 (Version 1)
Quarter: 2025Q3

REPORT INFORMATION
  Report Type: Report from Study
  Country: US (occurrence: US)
  Receive Date: 20250901
  Receipt Date: 20250901
  Transmission Date: 20251020
  Serious: No
  Sender: BIOGEN
  Company Number: US-BIOGEN-2025BI01322244

PATIENT
  Age: 24 Year
  Sex: Female

DRUGS (1)
  1. ZURZUVAE [Suspect]
     Active Substance: ZURANOLONE
     Indication: Perinatal depression
     Route: 050
     Dates: start: 20250822, end: 20250824

REACTIONS (5)
  - Vaginal haemorrhage [Unknown]
  - Dizziness [Unknown]
  - Somnolence [Unknown]
  - Euphoric mood [Unknown]
  - Nausea [Unknown]

NARRATIVE: CASE EVENT DATE: 20250801
